FAERS Safety Report 8805745 (Version 2)
Quarter: 2015Q2

REPORT INFORMATION
  Report Type: Report from Study
  Country: US (occurrence: US)
  Receive Date: 20120924
  Receipt Date: 20150623
  Transmission Date: 20150821
  Serious: Yes (Death)
  Sender: FDA-Public Use
  Company Number: US-ROCHE-1124704

PATIENT
  Sex: Male

DRUGS (6)
  1. TEMODAR [Concomitant]
     Active Substance: TEMOZOLOMIDE
     Route: 065
  2. AVASTIN [Suspect]
     Active Substance: BEVACIZUMAB
     Indication: BRAIN NEOPLASM MALIGNANT
     Route: 042
     Dates: start: 20060706
  3. BENADRYL [Concomitant]
     Active Substance: DIPHENHYDRAMINE HYDROCHLORIDE
     Route: 065
  4. TYLENOL [Concomitant]
     Active Substance: ACETAMINOPHEN
     Route: 065
  5. LOMUSTINE. [Suspect]
     Active Substance: LOMUSTINE
     Indication: PRODUCT USED FOR UNKNOWN INDICATION
     Route: 048
  6. DECADRON [Concomitant]
     Active Substance: DEXAMETHASONE
     Route: 065

REACTIONS (11)
  - Death [Fatal]
  - Sedation [Unknown]
  - Depressed level of consciousness [Unknown]
  - Asthenia [Unknown]
  - Fluid intake reduced [Unknown]
  - Emotional distress [Unknown]
  - Muscular weakness [Unknown]
  - Diplopia [Unknown]
  - Haemorrhage [Unknown]
  - Blood pressure increased [Unknown]
  - Dizziness [Unknown]
